FAERS Safety Report 7312317-1 (Version None)
Quarter: 2011Q1

REPORT INFORMATION
  Report Type: 
  Country: None (occurrence: None)
  Receive Date: 20110224
  Receipt Date: 20110218
  Transmission Date: 20110831
  Serious: Yes (Hospitalization)
  Sender: FDA-Public Use
  Company Number: B0701953A

PATIENT
  Age: 16 Year
  Sex: Female

DRUGS (1)
  1. LAMICTAL [Suspect]
     Dosage: 50MG PER DAY
     Route: 048
     Dates: start: 20100924

REACTIONS (6)
  - NAUSEA [None]
  - VOMITING [None]
  - DIZZINESS [None]
  - SOMNOLENCE [None]
  - HYPERGLYCAEMIA [None]
  - OVERDOSE [None]
